FAERS Safety Report 26091512 (Version 1)
Quarter: 2025Q4

REPORT INFORMATION
  Report Type: Spontaneous
  Country: US (occurrence: None)
  Receive Date: 20251126
  Receipt Date: 20251126
  Transmission Date: 20260117
  Serious: Yes (Hospitalization)
  Sender: FDA-CTU
  Company Number: None

PATIENT
  Age: 40 Year
  Sex: Female
  Weight: 82.7 kg

DRUGS (2)
  1. CAPECITABINE [Suspect]
     Active Substance: CAPECITABINE
     Dates: end: 20251112
  2. ELOXATIN [Suspect]
     Active Substance: OXALIPLATIN
     Dates: end: 20251022

REACTIONS (9)
  - Vitamin D deficiency [None]
  - Paraesthesia [None]
  - Hypoaesthesia [None]
  - Hypoaesthesia [None]
  - Hypoaesthesia oral [None]
  - Paraesthesia oral [None]
  - Hypoaesthesia oral [None]
  - Paraesthesia oral [None]
  - Pharyngeal oedema [None]

NARRATIVE: CASE EVENT DATE: 20251112
